FAERS Safety Report 8615636-1 (Version None)
Quarter: 2012Q3

REPORT INFORMATION
  Report Type: 
  Country: None (occurrence: None)
  Receive Date: 20120823
  Receipt Date: 20120814
  Transmission Date: 20120928
  Serious: Yes (Hospitalization, Disabling, Other)
  Sender: FDA-Public Use
  Company Number: US-009507513-1205USA00038

PATIENT

DRUGS (5)
  1. FOSAMAX [Suspect]
     Indication: OSTEOPOROSIS
     Dosage: 35 MG, UNK
     Route: 048
     Dates: start: 20011126, end: 20060703
  2. FOSAMAX [Suspect]
     Indication: BONE DENSITOMETRY
  3. FOSAMAX [Suspect]
     Indication: OSTEOPENIA
     Dosage: 70 MG, UNK
     Route: 048
     Dates: start: 20060703, end: 20080701
  4. FOSAMAX [Suspect]
     Dosage: 70 MG, UNK
     Route: 048
     Dates: start: 20080701, end: 20100101
  5. ALENDRONATE SODIUM [Suspect]
     Route: 048

REACTIONS (33)
  - CORONARY ARTERY DISEASE [None]
  - OSTEOARTHRITIS [None]
  - BENIGN PROSTATIC HYPERPLASIA [None]
  - RHINITIS ALLERGIC [None]
  - BLOOD CALCIUM DECREASED [None]
  - GASTROOESOPHAGEAL REFLUX DISEASE [None]
  - SURGERY [None]
  - GROIN PAIN [None]
  - CONSTIPATION [None]
  - FRACTURE NONUNION [None]
  - HYPERLIPIDAEMIA [None]
  - DEVICE COMPONENT ISSUE [None]
  - BACK PAIN [None]
  - MEDICAL DEVICE REMOVAL [None]
  - DENTAL IMPLANTATION [None]
  - URINARY RETENTION [None]
  - ANAEMIA OF CHRONIC DISEASE [None]
  - DEVICE BREAKAGE [None]
  - INAPPROPRIATE SCHEDULE OF DRUG ADMINISTRATION [None]
  - OPEN REDUCTION OF FRACTURE [None]
  - ANAEMIA [None]
  - CALCIUM DEFICIENCY [None]
  - HYPERTENSION [None]
  - ROTATOR CUFF SYNDROME [None]
  - POLYARTHRITIS [None]
  - ADVERSE EVENT [None]
  - ASTHENIA [None]
  - FEMUR FRACTURE [None]
  - BONE DENSITY DECREASED [None]
  - PERIODONTAL DISEASE [None]
  - COLONIC POLYP [None]
  - SPINAL FUSION SURGERY [None]
  - ANAEMIA POSTOPERATIVE [None]
